FAERS Safety Report 5132293-X (Version None)
Quarter: 2006Q4

REPORT INFORMATION
  Report Type: 
  Country: None (occurrence: None)
  Receive Date: 20061023
  Receipt Date: 20061010
  Transmission Date: 20070319
  Serious: Yes (Other)
  Sender: FDA-Public Use
  Company Number: US-JNJFOC-20061003177

PATIENT
  Sex: Female
  Weight: 55.79 kg

DRUGS (10)
  1. FENTANYL TRANSDERMAL SYSTEM [Suspect]
     Indication: BACK PAIN
     Route: 062
  2. METRONIDAZOLE [Suspect]
     Route: 048
  3. METRONIDAZOLE [Suspect]
     Indication: DIVERTICULITIS
     Route: 048
  4. ASPIRIN [Concomitant]
     Indication: TRANSIENT ISCHAEMIC ATTACK
     Route: 048
  5. MOBIC [Concomitant]
     Route: 048
  6. PRILOSEC [Concomitant]
     Route: 048
  7. NEURONTIN [Concomitant]
     Route: 048
  8. VICODIN [Concomitant]
     Indication: PAIN
     Route: 048
  9. PEPCID [Concomitant]
     Route: 048
  10. ATIVAN [Concomitant]
     Route: 048

REACTIONS (8)
  - CONSTIPATION [None]
  - DIVERTICULITIS [None]
  - DIZZINESS [None]
  - HEADACHE [None]
  - NAUSEA [None]
  - SKIN IRRITATION [None]
  - THINKING ABNORMAL [None]
  - VARICOSE ULCERATION [None]
